FAERS Safety Report 22517781 (Version 1)
Quarter: 2023Q2

REPORT INFORMATION
  Report Type: Spontaneous
  Country: US (occurrence: US)
  Receive Date: 20230604
  Receipt Date: 20230604
  Transmission Date: 20230721
  Serious: Yes (Other)
  Sender: FDA-Public Use
  Company Number: US-BIOGEN-2023BI01208340

PATIENT
  Age: 53 Year
  Sex: Male

DRUGS (1)
  1. TYSABRI [Suspect]
     Active Substance: NATALIZUMAB
     Indication: Multiple sclerosis
     Route: 050
     Dates: start: 20210611

REACTIONS (4)
  - Seizure [Unknown]
  - Sensory disturbance [Unknown]
  - Paraesthesia [Unknown]
  - Head discomfort [Unknown]

NARRATIVE: CASE EVENT DATE: 20230501
